FAERS Safety Report 9735523 (Version 2)
Quarter: 2015Q3

REPORT INFORMATION
  Report Type: Spontaneous
  Country: US (occurrence: US)
  Receive Date: 20131206
  Receipt Date: 20150804
  Transmission Date: 20151125
  Serious: No
  Sender: FDA-Public Use
  Company Number: US-GILEAD-2009-0023567

PATIENT
  Age: 65 Year
  Sex: Female
  Weight: 89.81 kg

DRUGS (18)
  1. MIRAPEX [Concomitant]
     Active Substance: PRAMIPEXOLE DIHYDROCHLORIDE
  2. DARVOCET-N 100 [Concomitant]
     Active Substance: ACETAMINOPHEN\PROPOXYPHENE NAPSYLATE
  3. FORTEO [Concomitant]
     Active Substance: TERIPARATIDE
  4. ATARAX [Concomitant]
     Active Substance: HYDROXYZINE\HYDROXYZINE HYDROCHLORIDE
  5. ZOLPIDEM [Concomitant]
     Active Substance: ZOLPIDEM\ZOLPIDEM TARTRATE
  6. LETAIRIS [Suspect]
     Active Substance: AMBRISENTAN
     Indication: PULMONARY ARTERIAL HYPERTENSION
     Route: 048
     Dates: start: 20090702
  7. PROTONIX [Concomitant]
     Active Substance: PANTOPRAZOLE SODIUM
  8. LASIX [Concomitant]
     Active Substance: FUROSEMIDE
  9. CLARITIN [Concomitant]
     Active Substance: LORATADINE
  10. LANTUS [Concomitant]
     Active Substance: INSULIN GLARGINE
  11. KLOR-CON [Concomitant]
     Active Substance: POTASSIUM CHLORIDE
  12. VESICARE [Concomitant]
     Active Substance: SOLIFENACIN SUCCINATE
  13. AZO [Concomitant]
     Active Substance: PHENAZOPYRIDINE HYDROCHLORIDE
  14. TIZADINE [Concomitant]
  15. HUMALOG [Concomitant]
     Active Substance: INSULIN LISPRO
  16. ERGOCALCIFEROL/NICOTINAMIDE/RETINOL/ASCORBIC ACID/FOLIC ACID/PANTHENOL/RIBOFLAVIN/THIAMINE HYDROCHLO [Concomitant]
  17. MELOXICAM. [Concomitant]
     Active Substance: MELOXICAM
  18. IRON [Concomitant]
     Active Substance: IRON

REACTIONS (2)
  - Oedema peripheral [Recovered/Resolved]
  - Face oedema [Recovered/Resolved]
